FAERS Safety Report 7443004-7 (Version None)
Quarter: 2011Q2

REPORT INFORMATION
  Report Type: 
  Country: None (occurrence: None)
  Receive Date: 20110428
  Receipt Date: 20110419
  Transmission Date: 20111010
  Serious: Yes (Death, Life-Threatening, Hospitalization, Disabling)
  Sender: FDA-Public Use
  Company Number: GB-BRISTOL-MYERS SQUIBB COMPANY-15681935

PATIENT
  Age: 3 Year
  Sex: Female
  Weight: 10 kg

DRUGS (35)
  1. ETOPOSIDE [Suspect]
     Indication: LYMPHOHISTIOCYTOSIS
     Dates: start: 20110221
  2. FENTANYL [Concomitant]
  3. POTASSIUM CHLORIDE [Concomitant]
  4. CLINDAMYCIN [Concomitant]
  5. SYTRON [Concomitant]
  6. BECLOMETHASONE DIPROPIONATE [Concomitant]
  7. CIDOFOVIR [Concomitant]
     Indication: ADENOVIRUS INFECTION
     Route: 042
     Dates: start: 20110211, end: 20110215
  8. AMOXICILLIN [Concomitant]
     Indication: PROPHYLAXIS
  9. PROMETHAZINE HCL [Concomitant]
  10. OSELTAMIVIR PHOSPHATE [Concomitant]
     Indication: ABNORMAL WITHDRAWAL BLEEDING
     Dates: start: 20110114
  11. DEXAMETHASONE [Concomitant]
     Dates: start: 20110218
  12. PROBENECID [Concomitant]
     Dosage: 1DF=500MG/250MG/250MG
     Route: 048
     Dates: start: 20110111, end: 20110215
  13. SODIUM FEREDETATE [Concomitant]
  14. CEFOTAXIME [Concomitant]
  15. IMMUNE GLOBULIN INTRAVENOUS (HUMAN) [Concomitant]
     Indication: RASH
     Dosage: 2 X 2G/KG
     Dates: start: 20110205
  16. TPN [Concomitant]
     Dates: start: 20110127
  17. DERMOL SOL [Concomitant]
  18. LOPERAMIDE HCL [Concomitant]
  19. FUROSEMIDE [Concomitant]
  20. DOMPERIDONE [Concomitant]
  21. OMEPRAZOLE [Concomitant]
  22. MIDAZOLAM [Concomitant]
  23. CALCIUM-SANDOZ [Concomitant]
     Dosage: CALCIUM-SANDOZ AMPOULES
  24. CEFTAZIDIME [Concomitant]
     Dosage: CEFTAZIDIME PENTAHYDRATE
  25. ALBUTEROL SULFATE AUTOHALER [Concomitant]
  26. SPIRONOLACTONE [Concomitant]
  27. CHLORAL HYDRATE [Concomitant]
  28. TEICOPLANIN [Concomitant]
  29. CIPROFLOXACIN [Concomitant]
  30. IMMUNE GLOBULIN INTRAVENOUS (HUMAN) [Concomitant]
     Indication: LYMPHOHISTIOCYTOSIS
     Dosage: 2 X 2G/KG
     Dates: start: 20110205
  31. ASPIRIN [Concomitant]
  32. CHLOROTHIAZIDE [Concomitant]
  33. ACETAMINOPHEN [Concomitant]
  34. METHYLPREDNISOLONE [Concomitant]
  35. CYCLOSPORINE [Concomitant]
     Dates: start: 20110218

REACTIONS (4)
  - WHEEZING [None]
  - SWELLING FACE [None]
  - CARDIAC ARREST [None]
  - HYPERTENSION [None]
